FAERS Safety Report 6754248-1 (Version None)
Quarter: 2010Q2

REPORT INFORMATION
  Report Type: 
  Country: None (occurrence: None)
  Receive Date: 20100524
  Receipt Date: 20100323
  Transmission Date: 20101027
  Serious: No
  Sender: FDA-Public Use
  Company Number: 009286

PATIENT
  Age: 66 Year
  Sex: Female

DRUGS (1)
  1. CIMZIA [Suspect]
     Dosage: 400 MG  400X28 DAYS, 400 MG EVERY 28 DAYS SUBCUTANEOUS
     Route: 058

REACTIONS (1)
  - DRUG INEFFECTIVE [None]
